FAERS Safety Report 5916176-0 (Version None)
Quarter: 2008Q4

REPORT INFORMATION
  Report Type: 
  Country: None (occurrence: None)
  Receive Date: 20081009
  Receipt Date: 20080929
  Transmission Date: 20090506
  Serious: Yes (Hospitalization)
  Sender: FDA-Public Use
  Company Number: 2008BI025457

PATIENT
  Age: 74 Year
  Sex: Female
  Weight: 58.9676 kg

DRUGS (2)
  1. AVONEX [Suspect]
     Dosage: QW;IM
     Route: 030
     Dates: start: 20030101, end: 20050101
  2. AVONEX [Suspect]
     Dosage: QW;IM
     Route: 030
     Dates: start: 20080911

REACTIONS (4)
  - FALL [None]
  - MYOCARDIAL INFARCTION [None]
  - SKIN LACERATION [None]
  - TRANSIENT ISCHAEMIC ATTACK [None]
